FAERS Safety Report 7991901-6 (Version None)
Quarter: 2011Q4

REPORT INFORMATION
  Report Type: 
  Country: None (occurrence: None)
  Receive Date: 20111219
  Receipt Date: 20111206
  Transmission Date: 20120403
  Serious: Yes (Other)
  Sender: FDA-Public Use
  Company Number: JP-AMGEN-JPNSP2011067012

PATIENT
  Age: 68 Year
  Sex: Female
  Weight: 71 kg

DRUGS (10)
  1. ZOLPIDEM [Concomitant]
     Indication: INSOMNIA
     Route: 048
  2. SAWADOL [Concomitant]
     Indication: HYPERTENSION
     Route: 048
  3. DEPAKENE [Concomitant]
     Indication: EPILEPSY
     Route: 048
  4. RABEPRAZOLE SODIUM [Concomitant]
     Route: 048
  5. ATENOLOL [Concomitant]
     Indication: HYPERTENSION
     Route: 048
  6. CANDESARTAN CILEXETIL AND HYDROCHLOROTHIAZIDE [Concomitant]
     Indication: HYPERTENSION
     Route: 048
  7. NEUFAN [Concomitant]
     Indication: HYPERURICAEMIA
     Route: 048
  8. ROMIPLATE [Suspect]
     Indication: IDIOPATHIC THROMBOCYTOPENIC PURPURA
     Dosage: 1 MUG/KG, UNK
     Route: 058
     Dates: start: 20110825, end: 20111130
  9. SULFAMETHOXAZOLE AND TRIMETHOPRIM [Concomitant]
     Indication: INFECTION PROPHYLAXIS
     Dosage: UNK
     Route: 048
  10. AMLODIPINE [Concomitant]
     Indication: HYPERTENSION
     Route: 048

REACTIONS (2)
  - CEREBRAL INFARCTION [None]
  - EPILEPSY [None]
